FAERS Safety Report 11253831 (Version 1)
Quarter: 2015Q3

REPORT INFORMATION
  Report Type: Report from Study
  Country: FR (occurrence: FR)
  Receive Date: 20150709
  Receipt Date: 20150709
  Transmission Date: 20151125
  Serious: Yes (Death)
  Sender: FDA-Public Use
  Company Number: FR-MERCK-1507FRA003359

PATIENT
  Age: 87 Year
  Sex: Female

DRUGS (1)
  1. PEMBROLIZUMAB. [Suspect]
     Active Substance: PEMBROLIZUMAB
     Indication: METASTATIC MALIGNANT MELANOMA
     Dosage: UNK, ONCE
     Route: 042
     Dates: start: 20150616, end: 20150616

REACTIONS (1)
  - Death [Fatal]

NARRATIVE: CASE EVENT DATE: 20150624
